FAERS Safety Report 23355181 (Version 2)
Quarter: 2024Q2

REPORT INFORMATION
  Report Type: Report from Study
  Country: US (occurrence: US)
  Receive Date: 20240102
  Receipt Date: 20240422
  Transmission Date: 20240717
  Serious: No
  Sender: FDA-Public Use
  Company Number: US-AstraZeneca-CH-00535524A

PATIENT
  Age: 75 Year
  Sex: Female

DRUGS (1)
  1. ULTOMIRIS [Suspect]
     Active Substance: RAVULIZUMAB-CWVZ
     Indication: Myasthenia gravis
     Dosage: UNK
     Route: 041
     Dates: start: 20231212

REACTIONS (1)
  - Muscular weakness [Recovered/Resolved]

NARRATIVE: CASE EVENT DATE: 20231201
